FAERS Safety Report 8127341-9 (Version None)
Quarter: 2012Q1

REPORT INFORMATION
  Report Type: 
  Country: None (occurrence: None)
  Receive Date: 20120210
  Receipt Date: 20120131
  Transmission Date: 20120608
  Serious: Yes (Hospitalization, Other)
  Sender: FDA-Public Use
  Company Number: FR-BRISTOL-MYERS SQUIBB COMPANY-15341050

PATIENT
  Age: 59 Year
  Sex: Female

DRUGS (2)
  1. SPRYCEL [Suspect]
     Indication: CHRONIC MYELOID LEUKAEMIA
     Dosage: 100MG/DAY
     Route: 048
     Dates: start: 20060101, end: 20100301
  2. ISOMERIDE [Suspect]
     Indication: DECREASED APPETITE
     Dosage: FOR A FEW MONTHS STARTED 30 YRS AGO

REACTIONS (5)
  - PULMONARY EMBOLISM [None]
  - CARDIAC FAILURE [None]
  - PULMONARY ARTERIAL HYPERTENSION [None]
  - RETINAL HAEMORRHAGE [None]
  - BLINDNESS UNILATERAL [None]
